FAERS Safety Report 9303978 (Version 1)
Quarter: 2013Q2

REPORT INFORMATION
  Report Type: Spontaneous
  Country: ZA (occurrence: ZA)
  Receive Date: 20130522
  Receipt Date: 20130522
  Transmission Date: 20140414
  Serious: Yes (Other)
  Sender: FDA-Public Use
  Company Number: PHHY2013ZA050534

PATIENT
  Age: 58 Year
  Sex: Female

DRUGS (9)
  1. RIFAMPICIN [Suspect]
     Indication: TUBERCULOSIS
  2. ETHAMBUTOL [Concomitant]
     Indication: TUBERCULOSIS
  3. ISONIAZID [Concomitant]
     Indication: TUBERCULOSIS
  4. ALZIDE//PYRAZINAMIDE [Concomitant]
     Indication: TUBERCULOSIS
  5. CO-TRIMOXAZOLE [Concomitant]
     Indication: TUBERCULOSIS
  6. CEFTRIAXONE [Concomitant]
     Indication: TUBERCULOSIS
  7. EFAVIRENZ [Concomitant]
  8. LAMIVUDINE [Concomitant]
  9. TENOFOVIR [Concomitant]

REACTIONS (4)
  - Hepatomegaly [Recovered/Resolved]
  - Hepatic steatosis [Recovered/Resolved]
  - Jaundice [Recovered/Resolved]
  - Cholestasis [Recovered/Resolved]
